FAERS Safety Report 11276001 (Version 3)
Quarter: 2015Q4

REPORT INFORMATION
  Report Type: Spontaneous
  Country: CZ (occurrence: CZ)
  Receive Date: 20150716
  Receipt Date: 20151116
  Transmission Date: 20160304
  Serious: Yes (Death, Hospitalization, Other)
  Sender: FDA-Public Use
  Company Number: CZ-ELI_LILLY_AND_COMPANY-CZ201507004173

PATIENT
  Age: 31 Year
  Sex: Male

DRUGS (2)
  1. VENLAFAXINE [Concomitant]
     Active Substance: VENLAFAXINE HYDROCHLORIDE
     Indication: PRODUCT USED FOR UNKNOWN INDICATION
     Dosage: 150 MG, QD
     Route: 065
  2. ZYPADHERA [Suspect]
     Active Substance: OLANZAPINE PAMOATE
     Indication: SCHIZOPHRENIA
     Dosage: 405 MG, MONTHLY (1/M)
     Route: 030

REACTIONS (5)
  - Anxiety [Recovered/Resolved]
  - Completed suicide [Fatal]
  - Depression [Recovered/Resolved]
  - Suicidal ideation [Recovered/Resolved]
  - Schizophrenia [Recovered/Resolved]

NARRATIVE: CASE EVENT DATE: 20150522
